FAERS Safety Report 12795555 (Version 2)
Quarter: 2016Q4

REPORT INFORMATION
  Report Type: Spontaneous
  Country: DE (occurrence: DE)
  Receive Date: 20160929
  Receipt Date: 20161107
  Transmission Date: 20170207
  Serious: Yes (Death, Hospitalization, Other)
  Sender: FDA-Public Use
  Company Number: US-009507513-1609USA012949

PATIENT
  Sex: Female

DRUGS (1)
  1. FIDAXOMICIN [Suspect]
     Active Substance: FIDAXOMICIN
     Indication: CLOSTRIDIUM DIFFICILE INFECTION
     Dosage: UNK UNK, UNKNOWN FREQ.
     Route: 065
     Dates: start: 2014

REACTIONS (2)
  - Clostridium difficile infection [Unknown]
  - Sepsis [Fatal]

NARRATIVE: CASE EVENT DATE: 2014
